FAERS Safety Report 22090010 (Version 2)
Quarter: 2023Q2

REPORT INFORMATION
  Report Type: Spontaneous
  Country: DE (occurrence: DE)
  Receive Date: 20230313
  Receipt Date: 20230402
  Transmission Date: 20230721
  Serious: Yes (Hospitalization, Other)
  Sender: FDA-Public Use
  Company Number: DE-BAYER-2023A030506

PATIENT
  Age: 71 Year
  Sex: Male

DRUGS (2)
  1. RIVAROXABAN [Suspect]
     Active Substance: RIVAROXABAN
     Indication: Atrial fibrillation
     Dosage: 20 MG, QD
     Route: 048
     Dates: end: 20230302
  2. RIVAROXABAN [Suspect]
     Active Substance: RIVAROXABAN
     Dosage: 20 MG
     Route: 048

REACTIONS (5)
  - Femoral neck fracture [Unknown]
  - Haemorrhagic diathesis [Unknown]
  - Haematoma [Unknown]
  - Coagulopathy [Unknown]
  - Overdose [Unknown]

NARRATIVE: CASE EVENT DATE: 20230303
